FAERS Safety Report 16827928 (Version 2)
Quarter: 2020Q1

REPORT INFORMATION
  Report Type: Spontaneous
  Country: US (occurrence: US)
  Receive Date: 20190919
  Receipt Date: 20200320
  Transmission Date: 20200409
  Serious: Yes (Hospitalization)
  Sender: FDA-Public Use
  Company Number: US-VERTEX PHARMACEUTICALS-2019-008347

PATIENT
  Age: 24 Year
  Sex: Male

DRUGS (25)
  1. PANTOPRAZOLE [Concomitant]
     Active Substance: PANTOPRAZOLE
  2. SODIUM CHLORIDE. [Concomitant]
     Active Substance: SODIUM CHLORIDE
  3. ALBUTEROL [SALBUTAMOL] [Concomitant]
     Active Substance: ALBUTEROL
  4. LINEZOLID. [Concomitant]
     Active Substance: LINEZOLID
  5. PROAIR HFA [Concomitant]
     Active Substance: ALBUTEROL SULFATE
  6. AZITHROMYCIN ANHYDROUS. [Concomitant]
     Active Substance: AZITHROMYCIN ANHYDROUS
  7. SYMDEKO [Suspect]
     Active Substance: IVACAFTOR\TEZACAFTOR
     Indication: CYSTIC FIBROSIS
     Dosage: 100MG TEZACAFTOR/150MG IVACAFTOR AM; 150MG IVACAFTOR PM
     Route: 048
     Dates: start: 20190509
  8. FLUTICASONE. [Concomitant]
     Active Substance: FLUTICASONE
     Route: 045
  9. ENSURE [Concomitant]
     Active Substance: AMINO ACIDS\DEXTROSE\ELECTROLYTES NOS\SOYBEAN OIL\VITAMINS
  10. URSODIOL. [Concomitant]
     Active Substance: URSODIOL
  11. VITAMIN D2 [Concomitant]
     Active Substance: ERGOCALCIFEROL
  12. PROMETHEGAN [Concomitant]
     Active Substance: PROMETHAZINE HYDROCHLORIDE
  13. FLUCONAZOLE. [Concomitant]
     Active Substance: FLUCONAZOLE
  14. RAMELTEON [Concomitant]
     Active Substance: RAMELTEON
  15. GAVILYTE G [Concomitant]
     Active Substance: POLYETHYLENE GLYCOL 3350\POTASSIUM CHLORIDE\SODIUM BICARBONATE\SODIUM CHLORIDE\SODIUM SULFATE ANHYDROUS
  16. BUPRENDAL [Concomitant]
  17. SPIRONOLACTON [Concomitant]
     Active Substance: SPIRONOLACTONE
  18. GABAPENTIN. [Concomitant]
     Active Substance: GABAPENTIN
  19. AMITRIPTYLENE [Concomitant]
     Active Substance: AMITRIPTYLINE
  20. LORATADINE. [Concomitant]
     Active Substance: LORATADINE
  21. ARIPIPRAZOLE. [Concomitant]
     Active Substance: ARIPIPRAZOLE
  22. RANITIDINE. [Concomitant]
     Active Substance: RANITIDINE
  23. PULMOZYME [Concomitant]
     Active Substance: DORNASE ALFA
  24. ONDANSETRON [Concomitant]
     Active Substance: ONDANSETRON
  25. ROZEREM [Concomitant]
     Active Substance: RAMELTEON

REACTIONS (1)
  - Volvulus [Recovering/Resolving]

NARRATIVE: CASE EVENT DATE: 20190826
